FAERS Safety Report 24186081 (Version 2)
Quarter: 2024Q3

REPORT INFORMATION
  Report Type: Spontaneous
  Country: US (occurrence: US)
  Receive Date: 20240808
  Receipt Date: 20240813
  Transmission Date: 20241017
  Serious: No
  Sender: Haleon PLC
  Company Number: US-HALEON-2190748

PATIENT

DRUGS (1)
  1. ALLI [Suspect]
     Active Substance: ORLISTAT
     Indication: Weight decreased
     Dosage: EXPDATE:20250731EXPDATE:20250731

REACTIONS (2)
  - Therapeutic product effect decreased [Unknown]
  - Product complaint [Unknown]
